FAERS Safety Report 11054288 (Version 1)
Quarter: 2015Q2

REPORT INFORMATION
  Report Type: Spontaneous
  Country: US (occurrence: None)
  Receive Date: 20150420
  Receipt Date: 20150420
  Transmission Date: 20150821
  Serious: No
  Sender: FDA-Public Use
  Company Number: 2015-00042

PATIENT
  Age: 77 Year
  Sex: Male
  Weight: 79.38 kg

DRUGS (3)
  1. UNSPECIFIED OMEGA 3 SUPPLEMENT [Concomitant]
  2. ZICAM COLD REMEDY RAPIDMELTS [Suspect]
     Active Substance: ZINC ACETATE ANHYDROUS\ZINC GLUCONATE
     Indication: NASOPHARYNGITIS
     Dosage: 1 RAPIDMELT 2-3 TIMES DAILY
     Dates: start: 20150408, end: 20150413
  3. PROPAFENONE. [Concomitant]
     Active Substance: PROPAFENONE

REACTIONS (1)
  - Ageusia [None]

NARRATIVE: CASE EVENT DATE: 201504
